FAERS Safety Report 10432441 (Version 1)
Quarter: 2014Q3

REPORT INFORMATION
  Report Type: Spontaneous
  Country: US (occurrence: None)
  Receive Date: 20140904
  Receipt Date: 20140904
  Transmission Date: 20150326
  Serious: Yes (Other)
  Sender: FDA-Public Use
  Company Number: None

PATIENT
  Age: 47 Year
  Sex: Female
  Weight: 107.96 kg

DRUGS (1)
  1. LEVOFLOXACIN 50MG MACLEODS PHARMACEUTICALS [Suspect]
     Active Substance: LEVOFLOXACIN
     Indication: SINUSITIS
     Dosage: 10, ONCE DAILY, TAKEN BY MOUTH
     Route: 048
     Dates: start: 20140816, end: 20140820

REACTIONS (3)
  - Arthralgia [None]
  - Inflammation [None]
  - Abasia [None]

NARRATIVE: CASE EVENT DATE: 20140820
